FAERS Safety Report 19091828 (Version 1)
Quarter: 2021Q2

REPORT INFORMATION
  Report Type: Spontaneous
  Country: US (occurrence: US)
  Receive Date: 20210405
  Receipt Date: 20210405
  Transmission Date: 20210717
  Serious: No
  Sender: FDA-Public Use
  Company Number: US-ORGANON-O2103USA002731

PATIENT
  Age: 78 Year
  Sex: Female

DRUGS (2)
  1. SALBUTAMOL [Concomitant]
     Active Substance: ALBUTEROL
     Dosage: UNK
  2. DULERA [Suspect]
     Active Substance: FORMOTEROL FUMARATE DIHYDRATE\MOMETASONE FUROATE
     Indication: ASTHMA
     Dosage: 2 PUFFS, BID, ORAL INHALATION
     Dates: start: 202102

REACTIONS (5)
  - Pulmonary pain [Unknown]
  - Pain [Unknown]
  - Oesophageal discomfort [Unknown]
  - Dyspnoea [Unknown]
  - Dysphonia [Unknown]

NARRATIVE: CASE EVENT DATE: 202102
